FAERS Safety Report 16401436 (Version 4)
Quarter: 2019Q2

REPORT INFORMATION
  Report Type: Spontaneous
  Country: US (occurrence: US)
  Receive Date: 20190606
  Receipt Date: 20190619
  Transmission Date: 20190711
  Serious: Yes (Death, Other)
  Sender: FDA-Public Use
  Company Number: US-CELGENEUS-USA-20190601321

PATIENT
  Age: 75 Year
  Sex: Male

DRUGS (5)
  1. REVLIMID [Suspect]
     Active Substance: LENALIDOMIDE
     Indication: OFF LABEL USE
     Dosage: 10 MILLIGRAM
     Route: 048
     Dates: start: 201902
  2. REVLIMID [Suspect]
     Active Substance: LENALIDOMIDE
     Dosage: 15 MILLIGRAM
     Route: 048
     Dates: start: 201905, end: 20190528
  3. REVLIMID [Suspect]
     Active Substance: LENALIDOMIDE
     Indication: THROMBOCYTOPENIA
     Dosage: 7.5 MILLIGRAM
     Route: 048
     Dates: start: 201810
  4. REVLIMID [Suspect]
     Active Substance: LENALIDOMIDE
     Dosage: 5 MILLIGRAM
     Route: 048
     Dates: start: 201905
  5. REVLIMID [Suspect]
     Active Substance: LENALIDOMIDE
     Indication: CHRONIC MYELOMONOCYTIC LEUKAEMIA
     Dosage: 5 MILLIGRAM
     Route: 048
     Dates: start: 201807

REACTIONS (4)
  - Coronary artery disease [Fatal]
  - Renal impairment [Unknown]
  - Myocardial infarction [Fatal]
  - Nephrolithiasis [Unknown]

NARRATIVE: CASE EVENT DATE: 20190528
